FAERS Safety Report 10161421 (Version 1)
Quarter: 2014Q2

REPORT INFORMATION
  Report Type: Spontaneous
  Country: US (occurrence: US)
  Receive Date: 20140509
  Receipt Date: 20140509
  Transmission Date: 20141212
  Serious: No
  Sender: FDA-Public Use
  Company Number: US-009507513-1405USA003622

PATIENT
  Sex: Female

DRUGS (1)
  1. NEXPLANON [Suspect]
     Indication: CONTRACEPTION
     Dosage: 1 ROD (68MG) ; ONCE EVERY 3 YEARS
     Route: 059

REACTIONS (3)
  - Mental disorder [Unknown]
  - Bone pain [Unknown]
  - Arthralgia [Unknown]
